FAERS Safety Report 7142270-5 (Version None)
Quarter: 2010Q4

REPORT INFORMATION
  Report Type: 
  Country: None (occurrence: None)
  Receive Date: 20101207
  Receipt Date: 20101129
  Transmission Date: 20110411
  Serious: No
  Sender: FDA-Public Use
  Company Number: US-PFIZER INC-2010160347

PATIENT
  Sex: Female
  Weight: 63.5 kg

DRUGS (3)
  1. PRISTIQ [Suspect]
     Indication: DEPRESSION
     Dosage: 100 MG, 1X/DAY
     Route: 048
     Dates: start: 20100101
  2. AMBIEN [Concomitant]
     Indication: SLEEP DISORDER
     Dosage: 10 MG, 1X/DAY
     Route: 048
  3. METHADONE [Concomitant]
     Indication: PAIN
     Dosage: 40 MG, 1X/DAY

REACTIONS (1)
  - HYPERSOMNIA [None]
